FAERS Safety Report 9510111 (Version 2)
Quarter: 2013Q3

REPORT INFORMATION
  Report Type: Spontaneous
  Country: US (occurrence: US)
  Receive Date: 20130909
  Receipt Date: 20130909
  Transmission Date: 20140515
  Serious: No
  Sender: FDA-Public Use
  Company Number: US-BRISTOL-MYERS SQUIBB COMPANY-18760850

PATIENT
  Sex: Male
  Weight: 68.03 kg

DRUGS (5)
  1. ABILIFY [Suspect]
  2. LAMICTAL [Suspect]
  3. RISPERIDAL [Suspect]
  4. DAYTRANA [Suspect]
  5. RITALIN [Suspect]

REACTIONS (2)
  - Dizziness [Unknown]
  - Sedation [Unknown]
